FAERS Safety Report 19382125 (Version 3)
Quarter: 2022Q1

REPORT INFORMATION
  Report Type: Spontaneous
  Country: US (occurrence: US)
  Receive Date: 20210607
  Receipt Date: 20220308
  Transmission Date: 20220423
  Serious: No
  Sender: FDA-Public Use
  Company Number: US-PFIZER INC-2021535887

PATIENT

DRUGS (1)
  1. ESTRING [Suspect]
     Active Substance: ESTRADIOL
     Dosage: UNK

REACTIONS (5)
  - Product quality issue [Unknown]
  - Vulvovaginal pain [Unknown]
  - Feeling abnormal [Unknown]
  - Vulvovaginal discomfort [Unknown]
  - Drug ineffective [Unknown]
